FAERS Safety Report 6815766-0 (Version None)
Quarter: 2010Q3

REPORT INFORMATION
  Report Type: 
  Country: None (occurrence: None)
  Receive Date: 20100704
  Receipt Date: 20100622
  Transmission Date: 20110219
  Serious: Yes (Other)
  Sender: FDA-Public Use
  Company Number: FR-BRISTOL-MYERS SQUIBB COMPANY-15162159

PATIENT
  Age: 40 Year

DRUGS (1)
  1. ATAZANAVIR [Suspect]

REACTIONS (2)
  - HYPOPHOSPHATAEMIA [None]
  - OSTEOPENIA [None]
